FAERS Safety Report 21634194 (Version 1)
Quarter: 2022Q4

REPORT INFORMATION
  Report Type: Spontaneous
  Country: DE (occurrence: DE)
  Receive Date: 20221123
  Receipt Date: 20221123
  Transmission Date: 20230113
  Serious: Yes (Hospitalization)
  Sender: FDA-Public Use
  Company Number: DE-ADRED-07764-01

PATIENT
  Age: 39 Year
  Sex: Female

DRUGS (3)
  1. NIFEDIPINE [Suspect]
     Active Substance: NIFEDIPINE
     Indication: Product used for unknown indication
     Dosage: 5 MILLIGRAM, 5 MG, 1-0-2-0, CAPSULE
     Route: 048
  2. CLOMIPRAMINE [Concomitant]
     Active Substance: CLOMIPRAMINE
     Dosage: 75 MILLIGRAM, 75 MG, 0-0-2.5-0, TIME-RELEASE TABLE
     Route: 048
  3. ASPIRIN [Concomitant]
     Active Substance: ASPIRIN
     Dosage: 100 MILLIGRAM, 100 MG, 0-0-1-0, TABLET
     Route: 048

REACTIONS (3)
  - Hypertension [Unknown]
  - Headache [Unknown]
  - Nausea [Unknown]
